FAERS Safety Report 24825661 (Version 1)
Quarter: 2025Q1

REPORT INFORMATION
  Report Type: Spontaneous
  Country: US (occurrence: US)
  Receive Date: 20250109
  Receipt Date: 20250109
  Transmission Date: 20250409
  Serious: No
  Sender: PFIZER
  Company Number: US-PFIZER INC-202500002806

PATIENT
  Age: 53 Year
  Sex: Female

DRUGS (3)
  1. METHOTREXATE SODIUM [Suspect]
     Active Substance: METHOTREXATE SODIUM
  2. GABAPENTIN [Suspect]
     Active Substance: GABAPENTIN
  3. ENBREL [Concomitant]
     Active Substance: ETANERCEPT
     Route: 065

REACTIONS (1)
  - Drug ineffective [Unknown]
